FAERS Safety Report 9341989 (Version 1)
Quarter: 2013Q2

REPORT INFORMATION
  Report Type: Spontaneous
  Country: FR (occurrence: FR)
  Receive Date: 20130611
  Receipt Date: 20130611
  Transmission Date: 20140414
  Serious: Yes (Disabling)
  Sender: FDA-Public Use
  Company Number: FR-B.I. PHARMACEUTICALS,INC./RIDGEFIELD-2013-FF-01592FF

PATIENT
  Age: 57 Year
  Sex: Male

DRUGS (4)
  1. PRADAXA [Suspect]
     Indication: ATRIAL FIBRILLATION
     Dosage: 300 MG
     Route: 048
     Dates: start: 20121123, end: 20130304
  2. LASILIX FAIBLE [Suspect]
     Dosage: 20 MG
     Route: 048
     Dates: start: 20121123, end: 20130304
  3. ALDACTONE [Suspect]
     Dosage: 12.5 MG
     Route: 048
     Dates: start: 20121123, end: 20130304
  4. TRIATEC [Suspect]
     Dosage: 5 MG
     Route: 048
     Dates: start: 201206, end: 20130304

REACTIONS (1)
  - Renal failure acute [Recovered/Resolved with Sequelae]
